FAERS Safety Report 25331487 (Version 1)
Quarter: 2025Q2

REPORT INFORMATION
  Report Type: Spontaneous
  Country: US (occurrence: None)
  Receive Date: 20250519
  Receipt Date: 20250519
  Transmission Date: 20250716
  Serious: Yes (Other)
  Sender: FDA-CTU
  Company Number: None

PATIENT
  Sex: Female
  Weight: 52.2 kg

DRUGS (2)
  1. STRATTERA [Suspect]
     Active Substance: ATOMOXETINE HYDROCHLORIDE
     Indication: Attention deficit hyperactivity disorder
     Dates: start: 20250505, end: 20250517
  2. Bupropion Norethindrone Testosterone gel 1.62 [Concomitant]

REACTIONS (10)
  - Mania [None]
  - Dissociation [None]
  - Cognitive disorder [None]
  - Weight decreased [None]
  - Suicidal ideation [None]
  - Feelings of worthlessness [None]
  - Tobacco user [None]
  - Decreased appetite [None]
  - Disease recurrence [None]
  - Intentional self-injury [None]
